FAERS Safety Report 23682750 (Version 1)
Quarter: 2024Q1

REPORT INFORMATION
  Report Type: Spontaneous
  Country: US (occurrence: US)
  Receive Date: 20240328
  Receipt Date: 20240328
  Transmission Date: 20240410
  Serious: Yes (Other)
  Sender: FDA-Public Use
  Company Number: US-002147023-NVSC2024US065552

PATIENT

DRUGS (1)
  1. TASIGNA [Suspect]
     Active Substance: NILOTINIB
     Indication: Product used for unknown indication
     Dosage: 4 DOSAGE FORM (TAKE 2 IN THE MORNING + 2 AT NIGHT)
     Route: 065

REACTIONS (3)
  - Pulmonary oedema [Unknown]
  - Dermatitis allergic [Unknown]
  - Rash [Unknown]
